FAERS Safety Report 8150515-8 (Version None)
Quarter: 2012Q1

REPORT INFORMATION
  Report Type: 
  Country: None (occurrence: None)
  Receive Date: 20120220
  Receipt Date: 20120215
  Transmission Date: 20120608
  Serious: Yes (Hospitalization)
  Sender: FDA-Public Use
  Company Number: KR-BAYER-201021216GPV

PATIENT
  Age: 78 Year
  Sex: Male
  Weight: 59.6 kg

DRUGS (16)
  1. RANITIDINE [Concomitant]
     Indication: PROPHYLAXIS
     Dosage: 600 MG (DAILY DOSE), , ORAL
     Route: 048
     Dates: start: 20030101
  2. DERMATOP [Concomitant]
     Indication: PALMAR-PLANTAR ERYTHRODYSAESTHESIA SYNDROME
     Route: 061
     Dates: start: 20100322
  3. RAMIPRIL [Concomitant]
     Indication: TRANSIENT ISCHAEMIC ATTACK
     Dosage: 2.5 MG (DAILY DOSE), , ORAL
     Route: 048
     Dates: start: 20030101
  4. HERBAL PREPARATION [Concomitant]
     Indication: CONSTIPATION
     Dosage: 8 G (DAILY DOSE), , ORAL
     Route: 048
     Dates: start: 20100424
  5. SORAFENIB [Suspect]
     Indication: HEPATIC NEOPLASM MALIGNANT
     Dosage: 400 MG, BID
     Route: 048
     Dates: start: 20100308, end: 20100319
  6. URSODIOL [Concomitant]
     Indication: PROPHYLAXIS
     Dosage: 1800 MG (DAILY DOSE), , ORAL
     Route: 048
     Dates: start: 20090601
  7. PLACEBO [Suspect]
     Indication: HEPATIC NEOPLASM MALIGNANT
     Dosage: 150 MG, QD
     Route: 048
     Dates: start: 20100308, end: 20100319
  8. SORAFENIB [Suspect]
     Dosage: 400 MG, BID
     Route: 048
     Dates: start: 20100415, end: 20100426
  9. CLOPIDOGREL [Concomitant]
     Indication: TRANSIENT ISCHAEMIC ATTACK
     Dosage: 75 MG (DAILY DOSE), , ORAL
     Route: 048
     Dates: start: 20030101
  10. PLACEBO [Suspect]
     Dosage: 100 MG, QD
     Route: 048
     Dates: start: 20100415, end: 20100427
  11. BEARSE [Concomitant]
     Indication: GASTROINTESTINAL DISORDER
     Route: 048
     Dates: start: 20100429
  12. SORAFENIB [Suspect]
     Dosage: 400 MG, QD
     Route: 048
     Dates: start: 20100427, end: 20100427
  13. SERMION [Concomitant]
     Indication: TRANSIENT ISCHAEMIC ATTACK
     Dosage: 40 MG (DAILY DOSE), , ORAL
     Route: 048
     Dates: start: 20030101
  14. TAMSULOSIN HCL [Concomitant]
     Indication: BENIGN PROSTATIC HYPERPLASIA
     Dosage: 0.2 MG (DAILY DOSE), , ORAL
     Route: 048
     Dates: start: 20030101
  15. OXOLAMINE CITRATE [Concomitant]
     Indication: COUGH
     Dosage: 30 ML (DAILY DOSE), QD, ORAL
     Route: 048
     Dates: start: 20100427
  16. CALCIUM CARBONATE [Concomitant]
     Indication: GASTROINTESTINAL DISORDER
     Dosage: 1500 MG (DAILY DOSE), QD, ORAL
     Route: 048
     Dates: start: 20100429

REACTIONS (2)
  - PALMAR-PLANTAR ERYTHRODYSAESTHESIA SYNDROME [None]
  - TRANSIENT ISCHAEMIC ATTACK [None]
